FAERS Safety Report 7503137-3 (Version None)
Quarter: 2011Q2

REPORT INFORMATION
  Report Type: 
  Country: None (occurrence: None)
  Receive Date: 20110525
  Receipt Date: 20110518
  Transmission Date: 20111010
  Serious: Yes (Life-Threatening)
  Sender: FDA-Public Use
  Company Number: JP-PFIZER INC-2011109047

PATIENT
  Age: 80 Year
  Sex: Male

DRUGS (5)
  1. LIPITOR [Concomitant]
     Dosage: UNK
  2. LEVEMIR [Concomitant]
     Dosage: UNK
     Dates: start: 20100909
  3. ASPIRIN [Concomitant]
     Dosage: UNK
  4. MIGLITOL [Suspect]
     Indication: DIABETES MELLITUS
     Dosage: 50 MG, 3X/DAY
     Route: 048
     Dates: start: 20100909, end: 20110411
  5. DIOVAN [Concomitant]
     Dosage: UNK
     Dates: start: 20100909

REACTIONS (2)
  - INTESTINAL FUNCTIONAL DISORDER [None]
  - VOLVULUS [None]
